FAERS Safety Report 12526539 (Version 1)
Quarter: 2016Q3

REPORT INFORMATION
  Report Type: Report from Study
  Country: BR (occurrence: BR)
  Receive Date: 20160705
  Receipt Date: 20160705
  Transmission Date: 20161109
  Serious: Yes (Death)
  Sender: FDA-Public Use
  Company Number: PHHY2016BR091255

PATIENT
  Sex: Male

DRUGS (1)
  1. RASILEZ [Suspect]
     Active Substance: ALISKIREN
     Indication: BLOOD PRESSURE ABNORMAL
     Route: 048
     Dates: end: 201305

REACTIONS (1)
  - Lung neoplasm malignant [Fatal]
